FAERS Safety Report 9133177 (Version 1)
Quarter: 2013Q1

REPORT INFORMATION
  Report Type: Report from Study
  Country: US (occurrence: US)
  Receive Date: 20130129
  Receipt Date: 20130129
  Transmission Date: 20140127
  Serious: No
  Sender: FDA-Public Use
  Company Number: US-ABBOTT-12P-163-0931969-00

PATIENT
  Age: 64 Year
  Sex: Male

DRUGS (26)
  1. HUMIRA 40 MG/0.8 ML PEN [Suspect]
     Indication: RHEUMATOID ARTHRITIS
     Dates: start: 20120307
  2. HUMIRA 40 MG/0.8 ML PEN [Suspect]
     Dates: start: 20120414
  3. PREDNISONE [Concomitant]
     Indication: RHEUMATOID ARTHRITIS
     Dosage: 5MG DAILY
  4. RANEXA [Concomitant]
     Indication: TYPE 2 DIABETES MELLITUS
  5. SULFASALAZINE [Concomitant]
     Indication: RHEUMATOID ARTHRITIS
  6. HYDROCHLOROTHIAZIDE [Concomitant]
     Indication: CORONARY ARTERY OCCLUSION
  7. CARVEDILOL [Concomitant]
     Indication: CORONARY ARTERY OCCLUSION
  8. METFORMIN [Concomitant]
     Indication: TYPE 2 DIABETES MELLITUS
  9. LOSARTAN [Concomitant]
     Indication: BLOOD CHOLESTEROL INCREASED
     Dosage: 100MG DAILY
  10. SIMVASTATIN [Concomitant]
     Indication: HYPERTENSION
     Dosage: 40MG DAILY
  11. FOLIC ACID [Concomitant]
     Indication: DRUG THERAPY
     Dosage: 800MCG OTC DAILY
  12. FOLIC ACID [Concomitant]
     Dosage: 1MG DAILY
  13. PLAVIX [Concomitant]
     Indication: CORONARY ARTERY OCCLUSION
     Dosage: 75MG DAILY
  14. ZANTAC [Concomitant]
     Indication: DYSPEPSIA
  15. ZANTAC [Concomitant]
     Indication: ABDOMINAL DISCOMFORT
  16. ISOSORBID [Concomitant]
     Indication: ANGINA PECTORIS
     Dosage: 60MG DAILY
  17. MULTIVIT [Concomitant]
     Indication: DRUG THERAPY
  18. MULTIVIT [Concomitant]
     Indication: DRUG THERAPY
  19. VIT C [Concomitant]
     Indication: VITAMIN SUPPLEMENTATION
  20. VIT C [Concomitant]
     Indication: DRUG THERAPY
  21. METHOTREXATE [Concomitant]
     Indication: RHEUMATOID ARTHRITIS
  22. LANTUS [Concomitant]
     Indication: TYPE 2 DIABETES MELLITUS
     Dosage: 22 UNITS DAILY
  23. NOVOLOG [Concomitant]
     Indication: TYPE 2 DIABETES MELLITUS
     Dosage: SLIDING SCALE 4 TIMES DAILY
  24. BABY ASA [Concomitant]
     Indication: CORONARY ARTERY OCCLUSION
     Dosage: 81MG DAILY
  25. PROSTATE ESSENTIALS OTC VITAMIN [Concomitant]
     Indication: PROSTATIC DISORDER
  26. VIT D [Concomitant]
     Indication: VITAMIN SUPPLEMENTATION

REACTIONS (3)
  - Cough [Not Recovered/Not Resolved]
  - Respiratory tract congestion [Not Recovered/Not Resolved]
  - Blood glucose abnormal [Not Recovered/Not Resolved]
